FAERS Safety Report 6238517-X (Version None)
Quarter: 2009Q2

REPORT INFORMATION
  Report Type: 
  Country: None (occurrence: None)
  Receive Date: 20090622
  Receipt Date: 20090611
  Transmission Date: 20091009
  Serious: Yes (Other)
  Sender: FDA-Public Use
  Company Number: GB-BAXTER-2009BH009915

PATIENT
  Age: 89 Year
  Sex: Female

DRUGS (5)
  1. GAMMAGARD S/D [Suspect]
     Indication: IMMUNODEFICIENCY COMMON VARIABLE
     Route: 065
     Dates: start: 19960101, end: 20090601
  2. PIRITON [Concomitant]
  3. THYROID THERAPY [Concomitant]
  4. BETA BLOCKING AGENTS [Concomitant]
  5. HYDROCORTISONE [Concomitant]

REACTIONS (1)
  - ANAPHYLACTIC REACTION [None]
